FAERS Safety Report 18202484 (Version 1)
Quarter: 2020Q3

REPORT INFORMATION
  Report Type: Spontaneous
  Country: US (occurrence: US)
  Receive Date: 20200827
  Receipt Date: 20200827
  Transmission Date: 20201103
  Serious: No
  Sender: FDA-Public Use
  Company Number: US-MYLANLABS-2020M1071456

PATIENT
  Sex: Female
  Weight: 74 kg

DRUGS (1)
  1. CLONIDINE TRANSDERMAL SYSTEM [Suspect]
     Active Substance: CLONIDINE
     Indication: HYPERTENSION
     Dosage: AS PRESCRIBED
     Route: 062
     Dates: start: 20200527

REACTIONS (3)
  - Application site urticaria [Recovering/Resolving]
  - Product quality issue [Recovering/Resolving]
  - Product adhesion issue [Recovering/Resolving]
